FAERS Safety Report 19426843 (Version 1)
Quarter: 2021Q2

REPORT INFORMATION
  Report Type: Report from Study
  Country: US (occurrence: US)
  Receive Date: 20210616
  Receipt Date: 20210616
  Transmission Date: 20210717
  Serious: Yes (Hospitalization, Other)
  Sender: FDA-Public Use
  Company Number: US-JNJFOC-20210601785

PATIENT
  Age: 63 Year
  Sex: Female
  Weight: 76.4 kg

DRUGS (2)
  1. LETAIRIS [Concomitant]
     Active Substance: AMBRISENTAN
  2. VELETRI [Suspect]
     Active Substance: EPOPROSTENOL
     Indication: PULMONARY HYPERTENSION
     Route: 042

REACTIONS (4)
  - Dermatitis contact [Unknown]
  - Vascular device infection [Unknown]
  - Device physical property issue [Unknown]
  - Underdose [Unknown]

NARRATIVE: CASE EVENT DATE: 20210528
